FAERS Safety Report 9782571 (Version 1)
Quarter: 2013Q4

REPORT INFORMATION
  Report Type: Spontaneous
  Country: US (occurrence: US)
  Receive Date: 20131226
  Receipt Date: 20131226
  Transmission Date: 20140711
  Serious: No
  Sender: FDA-Public Use
  Company Number: US-BAYER-2013-157277

PATIENT
  Age: 24 Year
  Sex: Female
  Weight: 57.14 kg

DRUGS (1)
  1. ALEVE GELCAPS [Suspect]
     Route: 048

REACTIONS (1)
  - Extra dose administered [None]
